FAERS Safety Report 23533257 (Version 4)
Quarter: 2024Q2

REPORT INFORMATION
  Report Type: Spontaneous
  Country: JP (occurrence: JP)
  Receive Date: 20240216
  Receipt Date: 20240501
  Transmission Date: 20240716
  Serious: Yes (Hospitalization, Other)
  Sender: FDA-Public Use
  Company Number: JP-Eisai-202313418_DVG_P_1

PATIENT
  Age: 23 Year
  Sex: Female

DRUGS (6)
  1. DAYVIGO [Suspect]
     Active Substance: LEMBOREXANT
     Indication: Insomnia
     Route: 048
  2. DAYVIGO [Suspect]
     Active Substance: LEMBOREXANT
     Dosage: 10 TABLETS OF 5 MG (INTENTIONAL OVERDOSE)
     Route: 048
     Dates: start: 202401
  3. BELSOMRA [Suspect]
     Active Substance: SUVOREXANT
     Indication: Insomnia
     Dosage: DOSE AND FREQUENCY UNKNOWN.
     Route: 048
  4. BELSOMRA [Suspect]
     Active Substance: SUVOREXANT
     Dosage: 4 TO 5 TABLETS OF 20 MG (INTENTIONAL OVERDOSE).
     Route: 048
     Dates: start: 202401
  5. AMINOLEVULINIC ACID HYDROCHLORIDE [Suspect]
     Active Substance: AMINOLEVULINIC ACID HYDROCHLORIDE
     Indication: Insomnia
     Dosage: DOSE AND FREQUENCY UNKNOWN.
     Route: 048
  6. AMINOLEVULINIC ACID HYDROCHLORIDE [Suspect]
     Active Substance: AMINOLEVULINIC ACID HYDROCHLORIDE
     Dosage: 10 TABLETS OF UNKNOWN DOSE (INTENTIONAL OVERDOSE).
     Route: 048
     Dates: start: 202401

REACTIONS (5)
  - Altered state of consciousness [Recovered/Resolved]
  - Seizure [Recovered/Resolved]
  - Intentional overdose [Unknown]
  - Suicide attempt [Unknown]
  - Vomiting [Unknown]

NARRATIVE: CASE EVENT DATE: 20240101
